FAERS Safety Report 17745724 (Version 2)
Quarter: 2020Q2

REPORT INFORMATION
  Report Type: Spontaneous
  Country: US (occurrence: US)
  Receive Date: 20200505
  Receipt Date: 20200512
  Transmission Date: 20200714
  Serious: Yes (Other)
  Sender: FDA-Public Use
  Company Number: US-RECKITT BENCKISER HEALTHCARE INT LIMITED-RB-85543-2020

PATIENT
  Age: 52 Year
  Sex: Female

DRUGS (1)
  1. MUCINEX DM MAXIMUM STRENGTH [Suspect]
     Active Substance: DEXTROMETHORPHAN HYDROBROMIDE\GUAIFENESIN
     Indication: COUGH
     Dosage: 1200 MILLIGRAM, BID (TOTAL 17 TABLETS)
     Route: 065
     Dates: start: 2020, end: 20200413

REACTIONS (5)
  - Snoring [Recovered/Resolved]
  - Disorientation [Recovered/Resolved]
  - Sleep disorder [Recovered/Resolved]
  - Incorrect product administration duration [Recovered/Resolved]
  - Somnolence [Recovered/Resolved]

NARRATIVE: CASE EVENT DATE: 2020
